FAERS Safety Report 6202040-9 (Version None)
Quarter: 2009Q2

REPORT INFORMATION
  Report Type: 
  Country: None (occurrence: None)
  Receive Date: 20090526
  Receipt Date: 20090518
  Transmission Date: 20091009
  Serious: Yes (Other)
  Sender: FDA-Public Use
  Company Number: B0560010A

PATIENT
  Sex: Male

DRUGS (22)
  1. CIPROFLOXACIN HCL [Suspect]
     Indication: SINUS DISORDER
     Route: 065
  2. CLARITHROMYCIN [Suspect]
     Indication: SINUS DISORDER
     Route: 065
  3. CLINDAMYCIN HCL [Suspect]
     Indication: SINUS DISORDER
     Route: 065
  4. AMOXICILLIN AND CLAVULANATE POTASSIUM [Suspect]
     Indication: SINUS DISORDER
     Route: 065
  5. ERYTHROMYCIN [Suspect]
     Indication: SINUS DISORDER
     Route: 065
  6. FLOXACILLIN SODIUM [Suspect]
     Indication: SINUS DISORDER
     Route: 065
  7. AZITHROMYCIN [Suspect]
     Indication: SINUS DISORDER
     Route: 065
  8. AMOXICILLIN [Suspect]
     Indication: SINUS DISORDER
     Route: 065
  9. METRONIDAZOLE [Suspect]
     Indication: SINUS DISORDER
     Route: 065
  10. FLUOXETINE HCL [Concomitant]
     Indication: DRUG USE FOR UNKNOWN INDICATION
     Route: 065
  11. FLUTICASONE [Concomitant]
  12. MEBEVERINE [Concomitant]
  13. BETAMETASONE [Concomitant]
  14. FLIXONASE [Concomitant]
  15. PREDNISOLONE [Concomitant]
  16. MOMETASONE FUROATE [Concomitant]
  17. TRI-ADCORTYL [Concomitant]
  18. BETNESOL-N [Concomitant]
  19. EPHEDRINE [Concomitant]
  20. MICONAZOLE [Concomitant]
  21. BUDESONIDE [Concomitant]
  22. PILOCARPINE [Concomitant]

REACTIONS (8)
  - ABDOMINAL DISTENSION [None]
  - AGEUSIA [None]
  - ANOSMIA [None]
  - BREATH ODOUR [None]
  - DRY EYE [None]
  - FLATULENCE [None]
  - HYPERHIDROSIS [None]
  - VISION BLURRED [None]
